FAERS Safety Report 6212320-9 (Version None)
Quarter: 2009Q2

REPORT INFORMATION
  Report Type: 
  Country: None (occurrence: None)
  Receive Date: 20090529
  Receipt Date: 20090513
  Transmission Date: 20091009
  Serious: Yes (Life-Threatening, Hospitalization)
  Sender: FDA-Public Use
  Company Number: DSA_33660_2009

PATIENT
  Age: 72 Year
  Sex: Female

DRUGS (8)
  1. ENALAPRIL MALEATE [Suspect]
     Indication: HYPERTENSION
     Dosage: 20 MG BID ORAL
     Route: 048
     Dates: start: 20090312, end: 20090314
  2. DIANBEN (DIANBEN - METFORMIN HCL) (NOT SPECIFIED) [Suspect]
     Indication: TYPE 2 DIABETES MELLITUS
     Dosage: DF ORAL
     Route: 048
     Dates: start: 20070101, end: 20090314
  3. ENOXAPARIN SODIUM [Concomitant]
  4. FLUOXETINE HCL [Concomitant]
  5. SERETIDE [Concomitant]
  6. LANTUS [Concomitant]
  7. URBASON [Concomitant]
  8. OMEPRAZOLE [Concomitant]

REACTIONS (7)
  - DRUG INTERACTION [None]
  - HYPERKALAEMIA [None]
  - HYPOPERFUSION [None]
  - LACTIC ACIDOSIS [None]
  - NAUSEA [None]
  - RENAL FAILURE ACUTE [None]
  - VOMITING [None]
